FAERS Safety Report 6899177-8 (Version None)
Quarter: 2010Q3

REPORT INFORMATION
  Report Type: 
  Country: None (occurrence: None)
  Receive Date: 20100802
  Receipt Date: 20080213
  Transmission Date: 20110219
  Serious: Yes (Other)
  Sender: FDA-Public Use
  Company Number: US-PFIZER INC-2008002433

PATIENT
  Age: 54 Year
  Sex: Male

DRUGS (7)
  1. LYRICA [Suspect]
     Indication: ANXIETY
     Dates: start: 20071101
  2. NEURONTIN [Suspect]
  3. BUPRENORPHINE HCL AND NALOXONE HCL [Concomitant]
     Route: 048
     Dates: start: 20071012, end: 20071015
  4. DEPAKOTE [Concomitant]
     Indication: MOOD SWINGS
     Route: 048
     Dates: start: 20070815, end: 20071117
  5. METFORMIN HCL [Concomitant]
     Indication: DIABETES MELLITUS
     Route: 048
  6. LISINOPRIL [Concomitant]
     Indication: HYPERTENSION
     Route: 048
  7. LAMICTAL [Concomitant]

REACTIONS (1)
  - OEDEMA PERIPHERAL [None]
